FAERS Safety Report 9940370 (Version 2)
Quarter: 2014Q1

REPORT INFORMATION
  Report Type: Other
  Country: DK (occurrence: US)
  Receive Date: 20140303
  Receipt Date: 20140313
  Transmission Date: 20141002
  Serious: No
  Sender: FDA-Public Use
  Company Number: US-FRI-1000054679

PATIENT
  Age: 14 Year
  Sex: Male

DRUGS (4)
  1. CITALOPRAM [Suspect]
     Indication: ANXIETY
  2. SALMETEROL [Concomitant]
     Indication: ASTHMA
  3. FLUTICASONE [Concomitant]
     Indication: ASTHMA
     Dosage: 600 MG
  4. ALBUTEROL [Concomitant]

REACTIONS (1)
  - Off label use [Unknown]
